FAERS Safety Report 25723950 (Version 8)
Quarter: 2025Q4

REPORT INFORMATION
  Report Type: Spontaneous
  Country: US (occurrence: US)
  Receive Date: 20250825
  Receipt Date: 20251024
  Transmission Date: 20260118
  Serious: No
  Sender: SANDOZ
  Company Number: US-SANDOZ-SDZ2025US060926

PATIENT
  Sex: Female

DRUGS (1)
  1. ADALIMUMAB [Suspect]
     Active Substance: ADALIMUMAB
     Indication: Product used for unknown indication
     Dosage: STRENGTH(40MG/0.4ML), PREFILLED SYRINGE, 2LISY PE BI US
     Route: 058

REACTIONS (7)
  - Muscular weakness [Unknown]
  - Malaise [Unknown]
  - Adverse event [Unknown]
  - Drug dose omission by device [Unknown]
  - Product use issue [Unknown]
  - Device issue [Unknown]
  - Circumstance or information capable of leading to medication error [Unknown]
